FAERS Safety Report 9356843 (Version 2)
Quarter: 2013Q3

REPORT INFORMATION
  Report Type: Spontaneous
  Country: IT (occurrence: IT)
  Receive Date: 20130620
  Receipt Date: 20130809
  Transmission Date: 20140515
  Serious: Yes (Hospitalization)
  Sender: FDA-Public Use
  Company Number: IT-ABBOTT-13X-083-1106200-00

PATIENT
  Sex: Female
  Weight: 44 kg

DRUGS (3)
  1. MACLADIN [Suspect]
     Indication: OROPHARYNGEAL PAIN
     Route: 048
     Dates: start: 20130531, end: 20130603
  2. AULIN [Concomitant]
     Indication: ANALGESIC THERAPY
     Route: 048
     Dates: start: 20130531, end: 20130603
  3. LOETTE [Concomitant]
     Indication: DYSMENORRHOEA
     Dosage: FORM STRENGTH: 0.1MG+0.02 MG
     Route: 048
     Dates: start: 20130501, end: 20130506

REACTIONS (2)
  - Renal failure [Unknown]
  - Tubulointerstitial nephritis [Recovering/Resolving]
